FAERS Safety Report 18231796 (Version 1)
Quarter: 2020Q3

REPORT INFORMATION
  Report Type: Spontaneous
  Country: RU (occurrence: RU)
  Receive Date: 20200904
  Receipt Date: 20200904
  Transmission Date: 20201103
  Serious: Yes (Life-Threatening, Other)
  Sender: FDA-Public Use
  Company Number: RU-009507513-2009RUS001034

PATIENT
  Age: 9 Year
  Sex: Female
  Weight: 23 kg

DRUGS (10)
  1. AVOMIT (GRANISETRON HYDROCHLORIDE) [Concomitant]
     Indication: ANTIEMETIC SUPPORTIVE CARE
     Dosage: 1 MG PER DAY, IV DRIP
     Route: 041
  2. AMPHOLIP [Concomitant]
     Indication: ANTIFUNGAL TREATMENT
     Dosage: 100 MG PER DAY, IV DRIP
     Route: 041
     Dates: start: 20191009
  3. MORPHINE [Concomitant]
     Active Substance: MORPHINE
     Indication: PAIN
     Dosage: 0,01 MG/KG/HOUR PROLONGED INFUSION, IV DRIP
     Route: 041
     Dates: start: 20191025
  4. MOLGRAMOSTIM [Concomitant]
     Active Substance: MOLGRAMOSTIM
     Indication: BONE MARROW FAILURE
     Dosage: 150 MCG PER DAY, INTRAVENOUS
     Route: 042
     Dates: start: 20191025
  5. NEORAL SANDIMMUN [Concomitant]
     Active Substance: CYCLOSPORINE
     Indication: APLASTIC ANAEMIA
     Dosage: 25 MG PER 2 DAYS PER OS
     Route: 048
     Dates: start: 20191025
  6. ZYVOX [Concomitant]
     Active Substance: LINEZOLID
     Indication: NEUTROPENIC INFECTION
     Dosage: 300 MG PER 2 DAYS, IV DRIP
     Route: 041
     Dates: start: 20191029
  7. MERONEM [Suspect]
     Active Substance: MEROPENEM
     Indication: NEUTROPENIC INFECTION
     Dosage: 500 MG PER 3 DAYS, IV DRIP
     Route: 041
     Dates: start: 20191025
  8. ZARZIO [Concomitant]
     Active Substance: FILGRASTIM
     Indication: NEUTROPENIA
     Dosage: 240 MCG PER DAY, INTRAVENOUS
     Route: 042
     Dates: start: 20191025
  9. EMEND (FOSAPREPITANT DIMEGLUMINE) [Suspect]
     Active Substance: FOSAPREPITANT DIMEGLUMINE
     Dosage: 150 MG PER DAY
     Route: 041
     Dates: start: 20191029, end: 20191029
  10. CANCIDAS [Concomitant]
     Active Substance: CASPOFUNGIN ACETATE
     Indication: ANTIFUNGAL TREATMENT
     Dosage: 50 MG PER DAY, IV DRIP
     Route: 041
     Dates: start: 20191025

REACTIONS (3)
  - Respiratory distress [Recovering/Resolving]
  - Hypotension [Recovering/Resolving]
  - Purpura [Recovering/Resolving]

NARRATIVE: CASE EVENT DATE: 20191029
